FAERS Safety Report 24543715 (Version 1)
Quarter: 2024Q4

REPORT INFORMATION
  Report Type: Spontaneous
  Country: ES (occurrence: ES)
  Receive Date: 20241024
  Receipt Date: 20241024
  Transmission Date: 20250114
  Serious: Yes (Hospitalization, Other)
  Sender: SANOFI AVENTIS
  Company Number: ES-SA-2024SA303403

PATIENT
  Age: 87 Year
  Sex: Male

DRUGS (5)
  1. INSULIN GLARGINE [Interacting]
     Active Substance: INSULIN GLARGINE
     Indication: Hyperglycaemic crisis
     Dosage: 7 IU, QD
     Route: 058
     Dates: start: 20240621
  2. TOUJEO [Suspect]
     Active Substance: INSULIN GLARGINE
     Indication: Type 2 diabetes mellitus
     Dosage: 34 IU
     Route: 058
  3. LANTUS [Suspect]
     Active Substance: INSULIN GLARGINE
     Indication: Type 2 diabetes mellitus
     Dosage: UNK
     Route: 058
  4. INSULIN ASPART [Interacting]
     Active Substance: INSULIN ASPART
     Indication: Hyperglycaemic crisis
     Dosage: 3 IU, TID
     Route: 058
     Dates: start: 20240621, end: 20240625
  5. INSULIN NOS [Concomitant]
     Active Substance: INSULIN NOS
     Indication: Type 2 diabetes mellitus
     Route: 058

REACTIONS (8)
  - Pneumonia bacterial [Recovered/Resolved]
  - Dehydration [Recovered/Resolved]
  - Type 2 diabetes mellitus [Recovered/Resolved]
  - Condition aggravated [Recovered/Resolved]
  - Diabetes mellitus inadequate control [Recovering/Resolving]
  - Hypoglycaemia [Recovered/Resolved]
  - Leg amputation [Recovered/Resolved]
  - Blood glucose increased [Recovering/Resolving]

NARRATIVE: CASE EVENT DATE: 20240101
